FAERS Safety Report 7534251-4 (Version None)
Quarter: 2011Q2

REPORT INFORMATION
  Report Type: 
  Country: None (occurrence: None)
  Receive Date: 20110608
  Receipt Date: 20070120
  Transmission Date: 20111010
  Serious: Yes (Death)
  Sender: FDA-Public Use
  Company Number: PHHO2007NZ03572

PATIENT
  Sex: Female

DRUGS (3)
  1. STELAZINE [Concomitant]
     Dosage: UNK
  2. COUMADIN [Concomitant]
     Dosage: UNK
  3. CLOZAPINE [Suspect]
     Indication: SCHIZOPHRENIA
     Dosage: UNK
     Dates: start: 20040407

REACTIONS (1)
  - DEATH [None]
